FAERS Safety Report 9664611 (Version 1)
Quarter: 2013Q4

REPORT INFORMATION
  Report Type: Spontaneous
  Country: CA (occurrence: None)
  Receive Date: 20131031
  Receipt Date: 20131031
  Transmission Date: 20140711
  Serious: Yes (Life-Threatening)
  Sender: FDA-Public Use
  Company Number: FK201304773

PATIENT
  Age: 52 Year
  Sex: 0

DRUGS (13)
  1. VANCOMYCIN (MANUFACTURER UNKNOWN) (VANCOMYCIN) (VANCOMYCIN) [Suspect]
     Indication: ANTIBIOTIC PROPHYLAXIS
     Dosage: PLACED OVER DURA METER AND VERTEBRAE
     Route: 061
  2. MIDAZOLAM (MIDAZOLAM) [Concomitant]
  3. FENTANYL (FENTANYL) [Concomitant]
  4. PROPOFOL (PROPOFOL) [Concomitant]
  5. ROCURONIUM (ROCURONIUM) [Concomitant]
  6. DESFLURANE (DESFLURANE) [Concomitant]
  7. REMIFENTANYL (REMIFENTANYL) [Concomitant]
  8. DEXAMETHASONE (DEXAMETHASONE) [Concomitant]
  9. CEPHALOSPORINS AND RELATED SUBSTANCES (CEPHALOSPORINS AND RELATED SUBSTANCES) [Concomitant]
  10. CRYSTALLOID FLUID (OTHER I.V. SOLUTION ADDITIVES) [Concomitant]
  11. VOLUV EN (HETASTARCH) [Concomitant]
  12. RED BLOOD CELLS, CONCENTRATED (RED BLOOD CELLS, CONCENTRATE) [Concomitant]
  13. VASOPRESSOR SUPPORT (CARDIOVASCULAR SYSTEM DRUGS) [Concomitant]

REACTIONS (2)
  - Circulatory collapse [None]
  - Anaphylactoid reaction [None]
